FAERS Safety Report 15338006 (Version 1)
Quarter: 2018Q3

REPORT INFORMATION
  Report Type: Spontaneous
  Country: US (occurrence: US)
  Receive Date: 20180827
  Receipt Date: 20180827
  Transmission Date: 20181010
  Serious: Yes (Hospitalization)
  Sender: FDA-Public Use
  Company Number: None

PATIENT
  Sex: Female

DRUGS (4)
  1. HYDROCO/APAP TAB 5?325MG [Concomitant]
     Active Substance: ACETAMINOPHEN\HYDROCODONE
  2. ENBREL [Suspect]
     Active Substance: ETANERCEPT
     Indication: RHEUMATOID ARTHRITIS
     Dosage: ?          OTHER FREQUENCY:ONCE WEEKLY;?
     Route: 058
     Dates: start: 20180605
  3. ONDANSETRON TAB 4 MG ODT [Concomitant]
  4. OXYCOD/APAP TAB 5?325MG [Concomitant]

REACTIONS (3)
  - Hospitalisation [None]
  - Unevaluable event [None]
  - Condition aggravated [None]
